FAERS Safety Report 5364101-6 (Version None)
Quarter: 2007Q2

REPORT INFORMATION
  Report Type: 
  Country: None (occurrence: None)
  Receive Date: 20070620
  Receipt Date: 20070618
  Transmission Date: 20071010
  Serious: Yes (Hospitalization, Other)
  Sender: FDA-Public Use
  Company Number: HQWYE619514JUN07

PATIENT
  Age: 62 Year
  Sex: Male

DRUGS (3)
  1. CYCLOSPORINE [Suspect]
     Indication: PROPHYLAXIS AGAINST TRANSPLANT REJECTION
     Route: 048
     Dates: start: 20060818
  2. CYCLOSPORINE [Suspect]
     Dosage: UNSPECIFIED
     Route: 048
     Dates: end: 20070601
  3. CYCLOSPORINE [Suspect]
     Route: 048
     Dates: start: 20070609

REACTIONS (3)
  - DIABETIC FOOT INFECTION [None]
  - DYSPNOEA [None]
  - PYREXIA [None]
